FAERS Safety Report 15461545 (Version 1)
Quarter: 2018Q4

REPORT INFORMATION
  Report Type: Spontaneous
  Country: US (occurrence: US)
  Receive Date: 20181003
  Receipt Date: 20181003
  Transmission Date: 20190204
  Serious: No
  Sender: FDA-Public Use
  Company Number: US-MISSION PHARMACAL COMPANY-2055660

PATIENT
  Age: 62 Year
  Sex: Female

DRUGS (8)
  1. TIZANIDINE. [Concomitant]
     Active Substance: TIZANIDINE
  2. LITHOSTAT [Suspect]
     Active Substance: ACETOHYDROXAMIC ACID
     Indication: CALCULUS BLADDER
     Route: 048
     Dates: start: 20170328
  3. MS CONTIN [Concomitant]
     Active Substance: MORPHINE SULFATE
  4. FLUOXETINE [Concomitant]
     Active Substance: FLUOXETINE HYDROCHLORIDE
  5. OSPHENA [Concomitant]
     Active Substance: OSPEMIFENE
  6. VESICARE [Concomitant]
     Active Substance: SOLIFENACIN SUCCINATE
  7. LYRICA [Concomitant]
     Active Substance: PREGABALIN
  8. OMEPRAZOLE. [Concomitant]
     Active Substance: OMEPRAZOLE

REACTIONS (4)
  - Headache [Recovered/Resolved]
  - Hallucination [Recovered/Resolved]
  - Aphasia [Recovering/Resolving]
  - Tremor [Recovering/Resolving]
